FAERS Safety Report 9970420 (Version 1)
Quarter: 2014Q1

REPORT INFORMATION
  Report Type: Spontaneous
  Country: US (occurrence: None)
  Receive Date: 20140304
  Receipt Date: 20140304
  Transmission Date: 20141002
  Serious: Yes (Other)
  Sender: FDA-Public Use
  Company Number: 2014P1001521

PATIENT
  Age: 56 Year
  Sex: Male
  Weight: 111 kg

DRUGS (2)
  1. NEOSTIGMINE METHYLSULFATE INJECTION, USP (0033-10) 1.0 MG/ML [Suspect]
     Indication: NEUROMUSCULAR BLOCKADE REVERSAL
     Route: 030
     Dates: start: 20140116, end: 20140116
  2. MULTIPLE UNSPECIFIED MEDICATIONS [Concomitant]

REACTIONS (2)
  - Sepsis [None]
  - Asthenia [None]
